FAERS Safety Report 18606015 (Version 2)
Quarter: 2021Q1

REPORT INFORMATION
  Report Type: Spontaneous
  Country: PT (occurrence: PT)
  Receive Date: 20201211
  Receipt Date: 20210217
  Transmission Date: 20210419
  Serious: Yes (Disabling)
  Sender: FDA-Public Use
  Company Number: PT-TEVA-2020-PT-1856725

PATIENT
  Age: 65 Year
  Weight: 54 kg

DRUGS (1)
  1. TRAZODONE [Suspect]
     Active Substance: TRAZODONE HYDROCHLORIDE
     Indication: INSOMNIA
     Dosage: 1/2 TABLET OF 100MG
     Route: 048
     Dates: start: 20201103

REACTIONS (1)
  - Urinary tract obstruction [Unknown]

NARRATIVE: CASE EVENT DATE: 20201103
